FAERS Safety Report 13045522 (Version 1)
Quarter: 2016Q4

REPORT INFORMATION
  Report Type: Report from Study
  Country: US (occurrence: US)
  Receive Date: 20161220
  Receipt Date: 20161220
  Transmission Date: 20170207
  Serious: Yes (Other)
  Sender: FDA-Public Use
  Company Number: US-BAYER-2016-176423

PATIENT
  Age: 73 Year
  Sex: Male

DRUGS (13)
  1. HYDROCORTISONE. [Concomitant]
     Active Substance: HYDROCORTISONE
     Dosage: TOPICALLY 4 TIMES A DAY
  2. NASONEX [Concomitant]
     Active Substance: MOMETASONE FUROATE
  3. STIVARGA [Suspect]
     Active Substance: REGORAFENIB
     Indication: RECTAL CANCER
     Dosage: 160 MG, QD
     Route: 048
     Dates: start: 20160826, end: 2016
  4. ALLOPURINOL. [Concomitant]
     Active Substance: ALLOPURINOL
     Indication: GOUT
  5. CENTRUM SILVER [Concomitant]
     Active Substance: MINERALS\VITAMINS
     Dosage: 1 TABLET DAILY
     Route: 048
  6. STIVARGA [Suspect]
     Active Substance: REGORAFENIB
     Indication: RECTAL CANCER
     Dosage: 160 MG, QD
     Route: 048
     Dates: start: 2016
  7. ONDANSETRON [Concomitant]
     Active Substance: ONDANSETRON
     Dosage: UNK
  8. COLCHICINE. [Concomitant]
     Active Substance: COLCHICINE
     Indication: GOUT
  9. CLOTRIMAZOLE 1% VAGINAL CREAM [Concomitant]
     Dosage: TWICE A DAY
  10. VITAMIN D [Concomitant]
     Active Substance: CHOLECALCIFEROL
  11. ALENDRONATE SODIUM. [Concomitant]
     Active Substance: ALENDRONATE SODIUM
  12. TRIFLURIDINE. [Concomitant]
     Active Substance: TRIFLURIDINE
  13. OXINORM [OXYCODONE HYDROCHLORIDE] [Concomitant]

REACTIONS (24)
  - Constipation [Recovering/Resolving]
  - Constipation [None]
  - Hypoaesthesia [Not Recovered/Not Resolved]
  - Paraesthesia [Not Recovered/Not Resolved]
  - Pulmonary mass [None]
  - Benign prostatic hyperplasia [None]
  - Dehydration [None]
  - Lip ulceration [None]
  - Vomiting [None]
  - Occult blood positive [None]
  - Hypertension [None]
  - Prostatic specific antigen increased [None]
  - Neuralgia [Recovered/Resolved]
  - Depression [Recovering/Resolving]
  - Diarrhoea [None]
  - Osteopenia [None]
  - Diarrhoea [Recovered/Resolved]
  - Nausea [None]
  - Diarrhoea [Not Recovered/Not Resolved]
  - Mucosal inflammation [Recovering/Resolving]
  - Pain [Recovering/Resolving]
  - Diarrhoea [None]
  - Palmar-plantar erythrodysaesthesia syndrome [Not Recovered/Not Resolved]
  - Hypogonadism [None]

NARRATIVE: CASE EVENT DATE: 2016
